FAERS Safety Report 7953999-0 (Version None)
Quarter: 2011Q4

REPORT INFORMATION
  Report Type: 
  Country: None (occurrence: None)
  Receive Date: 20111202
  Receipt Date: 20111202
  Transmission Date: 20120403
  Serious: No
  Sender: FDA-Public Use
  Company Number: None

PATIENT
  Sex: Female
  Weight: 75.749 kg

DRUGS (1)
  1. WELCHOL [Suspect]
     Indication: BLOOD CHOLESTEROL ABNORMAL
     Dosage: ONE PACKET
     Route: 048
     Dates: start: 20110617, end: 20110619

REACTIONS (8)
  - FEELING ABNORMAL [None]
  - NECK PAIN [None]
  - DIZZINESS [None]
  - HEADACHE [None]
  - MUSCULOSKELETAL STIFFNESS [None]
  - JOINT STIFFNESS [None]
  - MYALGIA [None]
  - ARTHRALGIA [None]
